FAERS Safety Report 10297443 (Version 2)
Quarter: 2014Q3

REPORT INFORMATION
  Report Type: Report from Study
  Country: US (occurrence: US)
  Receive Date: 20140711
  Receipt Date: 20140805
  Transmission Date: 20150326
  Serious: Yes (Hospitalization, Other)
  Sender: FDA-Public Use
  Company Number: US-PFIZER INC-2014189503

PATIENT
  Age: 42 Year
  Sex: Female

DRUGS (2)
  1. LYRICA [Suspect]
     Active Substance: PREGABALIN
     Indication: ELECTRIC SHOCK
     Dosage: UNK
     Dates: start: 20140414
  2. COPAXONE [Suspect]
     Active Substance: GLATIRAMER ACETATE
     Indication: MULTIPLE SCLEROSIS
     Dosage: 20 MG, UNK
     Dates: start: 20110316

REACTIONS (5)
  - Cystitis [Unknown]
  - Loss of consciousness [Recovered/Resolved]
  - Cystitis interstitial [Unknown]
  - Anaphylactic reaction [Recovered/Resolved]
  - Schwannoma [Unknown]

NARRATIVE: CASE EVENT DATE: 20140414
